FAERS Safety Report 20818800 (Version 1)
Quarter: 2022Q2

REPORT INFORMATION
  Report Type: Spontaneous
  Country: US (occurrence: None)
  Receive Date: 20220511
  Receipt Date: 20220511
  Transmission Date: 20220720
  Serious: Yes (unspecified)
  Sender: FDA-Public Use
  Company Number: None

PATIENT
  Age: 81 Year
  Sex: Female
  Weight: 61.4 kg

DRUGS (5)
  1. TRANEXAMIC ACID [Suspect]
     Active Substance: TRANEXAMIC ACID
     Indication: Haemorrhage
     Dosage: OTHER FREQUENCY : ONE TIME;?
     Route: 041
     Dates: start: 20220321, end: 20220321
  2. TRANEXAMIC ACID [Suspect]
     Active Substance: TRANEXAMIC ACID
     Indication: Prophylaxis
  3. TRANEXAMIC ACID [Suspect]
     Active Substance: TRANEXAMIC ACID
     Indication: Intraoperative care
  4. SEVOFLURANE [Concomitant]
     Active Substance: SEVOFLURANE
     Dates: start: 20220321, end: 20220321
  5. MEPIVACAINE HYDROCHLORIDE [Concomitant]
     Active Substance: MEPIVACAINE HYDROCHLORIDE
     Dates: start: 20220321, end: 20220321

REACTIONS (7)
  - Muscle spasms [None]
  - Procedural complication [None]
  - Depressed level of consciousness [None]
  - PCO2 increased [None]
  - Myoclonus [None]
  - Rhabdomyolysis [None]
  - Delirium [None]

NARRATIVE: CASE EVENT DATE: 20220321
